FAERS Safety Report 13952887 (Version 1)
Quarter: 2017Q3

REPORT INFORMATION
  Report Type: Spontaneous
  Country: US (occurrence: US)
  Receive Date: 20170911
  Receipt Date: 20170911
  Transmission Date: 20171128
  Serious: No
  Sender: FDA-Public Use
  Company Number: US-TEVA-792571ACC

PATIENT
  Sex: Female

DRUGS (5)
  1. FENTANYL. [Suspect]
     Active Substance: FENTANYL
     Indication: PAIN
     Dates: start: 20170708
  2. FENTANYL. [Suspect]
     Active Substance: FENTANYL
  3. FENTANYL. [Suspect]
     Active Substance: FENTANYL
     Dates: start: 20170708
  4. FENTANYL. [Suspect]
     Active Substance: FENTANYL
  5. FENTANYL. [Suspect]
     Active Substance: FENTANYL

REACTIONS (2)
  - Dyspepsia [Unknown]
  - Pruritus [Unknown]
